FAERS Safety Report 19408865 (Version 1)
Quarter: 2021Q2

REPORT INFORMATION
  Report Type: Report from Study
  Country: US (occurrence: US)
  Receive Date: 20210613
  Receipt Date: 20210613
  Transmission Date: 20210717
  Serious: Yes (Hospitalization)
  Sender: FDA-Public Use
  Company Number: US-B.I. PHARMACEUTICALS,INC./RIDGEFIELD-2021-BI-100708

PATIENT
  Age: 82 Year
  Sex: Male
  Weight: 106 kg

DRUGS (1)
  1. OFEV [Suspect]
     Active Substance: NINTEDANIB
     Indication: IDIOPATHIC PULMONARY FIBROSIS
     Dosage: 200MG BY MOUTH DAILY
     Route: 048
     Dates: start: 20190925, end: 20210515

REACTIONS (2)
  - Dyspnoea [Unknown]
  - Diarrhoea [Not Recovered/Not Resolved]
